FAERS Safety Report 15244650 (Version 1)
Quarter: 2018Q3

REPORT INFORMATION
  Report Type: Spontaneous
  Country: US (occurrence: US)
  Receive Date: 20180713
  Receipt Date: 20180713
  Transmission Date: 20181010
  Serious: Yes (Disabling)
  Sender: FDA-Public Use
  Company Number: None

PATIENT
  Age: 49 Year
  Sex: Female
  Weight: 78.75 kg

DRUGS (7)
  1. PROBIOTICS [Concomitant]
     Active Substance: PROBIOTICS NOS
  2. MULTIVITAMIN [Concomitant]
     Active Substance: VITAMINS
  3. MULTIZYME [Concomitant]
  4. MAGNESIUM [Concomitant]
     Active Substance: MAGNESIUM
  5. CIPRO [Suspect]
     Active Substance: CIPROFLOXACIN HYDROCHLORIDE
     Indication: DIVERTICULITIS
     Dates: start: 20180607, end: 20180608
  6. SPANISH BLACK RADISH [Concomitant]
  7. TRAZODONE [Concomitant]
     Active Substance: TRAZODONE HYDROCHLORIDE

REACTIONS (12)
  - Neuropathy peripheral [None]
  - Anxiety [None]
  - Depression [None]
  - Fatigue [None]
  - Myalgia [None]
  - Suicidal ideation [None]
  - Asthenia [None]
  - Alopecia [None]
  - Toothache [None]
  - Joint noise [None]
  - Bedridden [None]
  - Insomnia [None]

NARRATIVE: CASE EVENT DATE: 20180607
